FAERS Safety Report 9738590 (Version 1)
Quarter: 2013Q4

REPORT INFORMATION
  Report Type: Report from Study
  Country: DE (occurrence: DE)
  Receive Date: 20131209
  Receipt Date: 20131209
  Transmission Date: 20140711
  Serious: Yes (Other)
  Sender: FDA-Public Use
  Company Number: DE-BEH-2013039271

PATIENT
  Age: 56 Year
  Sex: Female
  Weight: 80 kg

DRUGS (14)
  1. PRIVIGEN [Suspect]
     Dosage: START DATE JAN 2011
     Dates: start: 20120101, end: 20121212
  2. PRIVIGEN [Suspect]
     Dates: start: 20130226, end: 20130226
  3. PRIVIGEN [Suspect]
     Dates: start: 20130227, end: 20130227
  4. PRIVIGEN [Suspect]
     Dates: start: 20130417, end: 20130417
  5. PRIVIGEN [Suspect]
     Dates: start: 20130417, end: 20130417
  6. PRIVIGEN [Suspect]
     Dates: start: 20130418, end: 20130418
  7. PRIVIGEN [Suspect]
     Indication: DERMATOMYOSITIS
     Dates: start: 20130521, end: 20130521
  8. PRIVIGEN [Suspect]
     Dates: start: 20130522, end: 20130522
  9. CELLCEPT [Concomitant]
  10. FOSAMAX [Concomitant]
  11. IDEOS [Concomitant]
  12. PANTOZOL [Concomitant]
  13. FERRO SANOL DUODENAL [Concomitant]
  14. FOLIC ACID [Concomitant]

REACTIONS (4)
  - Nasopharyngitis [Recovered/Resolved]
  - Superinfection bacterial [Recovered/Resolved]
  - Nasopharyngitis [Recovered/Resolved]
  - Superinfection bacterial [Recovered/Resolved]
